FAERS Safety Report 15449238 (Version 1)
Quarter: 2018Q4

REPORT INFORMATION
  Report Type: Report from Study
  Country: None (occurrence: BR)
  Receive Date: 20181001
  Receipt Date: 20181001
  Transmission Date: 20190204
  Serious: Yes (Hospitalization)
  Sender: FDA-Public Use
  Company Number: BR-ABBVIE-18K-020-2500054-00

PATIENT
  Age: 56 Year
  Sex: Male
  Weight: 75 kg

DRUGS (1)
  1. HUMIRA [Suspect]
     Active Substance: ADALIMUMAB
     Indication: PSORIATIC ARTHROPATHY
     Route: 058
     Dates: start: 20141028, end: 2018

REACTIONS (4)
  - Localised infection [Recovered/Resolved]
  - Immunodeficiency [Recovered/Resolved]
  - Limb injury [Recovered/Resolved]
  - Scab [Recovered/Resolved]

NARRATIVE: CASE EVENT DATE: 201804
